FAERS Safety Report 7319317-6 (Version None)
Quarter: 2011Q1

REPORT INFORMATION
  Report Type: 
  Country: None (occurrence: None)
  Receive Date: 20110228
  Receipt Date: 20100127
  Transmission Date: 20110831
  Serious: No
  Sender: FDA-Public Use
  Company Number: A0841867A

PATIENT
  Age: 24 Year
  Sex: Female

DRUGS (2)
  1. UNKNOWN [Concomitant]
  2. LAMOTRIGINE [Suspect]
     Route: 048
     Dates: start: 20091118

REACTIONS (6)
  - TREMOR [None]
  - PAIN IN EXTREMITY [None]
  - MUSCLE TWITCHING [None]
  - MUSCULOSKELETAL STIFFNESS [None]
  - INSOMNIA [None]
  - PYREXIA [None]
